FAERS Safety Report 24024297 (Version 2)
Quarter: 2024Q2

REPORT INFORMATION
  Report Type: Report from Study
  Country: RO (occurrence: RO)
  Receive Date: 20240627
  Receipt Date: 20240628
  Transmission Date: 20240716
  Serious: No
  Sender: FDA-Public Use
  Company Number: RO-ROCHE-3457820

PATIENT
  Age: 74 Year
  Sex: Female
  Weight: 58.0 kg

DRUGS (1)
  1. PHESGO [Suspect]
     Active Substance: HYALURONIDASE-ZZXF\PERTUZUMAB\TRASTUZUMAB
     Indication: Breast mass
     Dosage: DOSE-600MG/600 MG.
     Route: 065

REACTIONS (3)
  - Memory impairment [Unknown]
  - Dizziness [Unknown]
  - Pain [Unknown]
